FAERS Safety Report 25307702 (Version 2)
Quarter: 2025Q2

REPORT INFORMATION
  Report Type: Spontaneous
  Country: CN (occurrence: CN)
  Receive Date: 20250513
  Receipt Date: 20250521
  Transmission Date: 20250716
  Serious: Yes (Other)
  Sender: ALEXION PHARMACEUTICALS
  Company Number: CN-ASTRAZENECA-202505CHN005989CN

PATIENT
  Age: 49 Year

DRUGS (5)
  1. IRESSA [Suspect]
     Active Substance: GEFITINIB
     Indication: Lung adenocarcinoma stage III
     Dosage: 250 MILLIGRAM, QD
  2. TAGRISSO [Suspect]
     Active Substance: OSIMERTINIB
     Indication: Lung adenocarcinoma
  3. ETOPOSIDE [Concomitant]
     Active Substance: ETOPOSIDE
  4. ETOPOSIDE [Concomitant]
     Active Substance: ETOPOSIDE
  5. CARBOPLATIN [Concomitant]
     Active Substance: CARBOPLATIN
     Route: 065

REACTIONS (10)
  - Malignant neoplasm progression [Unknown]
  - Drug resistance [Unknown]
  - Metastases to liver [Unknown]
  - Metastases to lung [Unknown]
  - Metastases to adrenals [Unknown]
  - Metastases to bone [Unknown]
  - Metastases to spleen [Unknown]
  - Malignant transformation [Unknown]
  - Metastases to kidney [Unknown]
  - Drug ineffective [Unknown]
